FAERS Safety Report 11769590 (Version 1)
Quarter: 2015Q4

REPORT INFORMATION
  Report Type: Spontaneous
  Country: US (occurrence: None)
  Receive Date: 20151123
  Receipt Date: 20151123
  Transmission Date: 20160304
  Serious: Yes (Hospitalization)
  Sender: FDA-Public Use
  Company Number: US-MDT-ADR-2015-02217

PATIENT
  Age: 19 Year
  Sex: Male

DRUGS (1)
  1. BACLOFEN INTRATHECAL 2,000MCG/ML [Suspect]
     Active Substance: BACLOFEN
     Indication: MUSCLE SPASTICITY
     Dosage: 1,972MCG/DAY

REACTIONS (1)
  - Lethargy [None]
